FAERS Safety Report 15248043 (Version 1)
Quarter: 2018Q3

REPORT INFORMATION
  Report Type: Spontaneous
  Country: US (occurrence: US)
  Receive Date: 20180714
  Receipt Date: 20180714
  Transmission Date: 20181010
  Serious: Yes (Life-Threatening, Hospitalization, Disabling, Other)
  Sender: FDA-Public Use
  Company Number: None

PATIENT
  Age: 38 Year
  Sex: Female
  Weight: 74.84 kg

DRUGS (6)
  1. NUVARING [Suspect]
     Active Substance: ETHINYL ESTRADIOL\ETONOGESTREL
     Route: 067
  2. EFFEXOR [Concomitant]
     Active Substance: VENLAFAXINE HYDROCHLORIDE
  3. LETROZOLE. [Concomitant]
     Active Substance: LETROZOLE
  4. KLONOPIN [Concomitant]
     Active Substance: CLONAZEPAM
  5. VITAMIN D [Concomitant]
     Active Substance: CHOLECALCIFEROL
  6. CALCIUM [Concomitant]
     Active Substance: CALCIUM

REACTIONS (18)
  - Scar [None]
  - Post-traumatic stress disorder [None]
  - Loss of personal independence in daily activities [None]
  - Deformity [None]
  - Feeling abnormal [None]
  - Progesterone receptor assay positive [None]
  - Anxiety [None]
  - Musculoskeletal pain [None]
  - Transplant [None]
  - Asthenia [None]
  - Breast pain [None]
  - Incontinence [None]
  - Gait disturbance [None]
  - HER-2 positive breast cancer [None]
  - Oestrogen receptor assay positive [None]
  - Neck pain [None]
  - Endometriosis [None]
  - Hormone level abnormal [None]

NARRATIVE: CASE EVENT DATE: 20161012
